FAERS Safety Report 7813786-0 (Version None)
Quarter: 2011Q4

REPORT INFORMATION
  Report Type: 
  Country: None (occurrence: None)
  Receive Date: 20111014
  Receipt Date: 20110930
  Transmission Date: 20120403
  Serious: Yes (Other)
  Sender: FDA-Public Use
  Company Number: US-JNJFOC-20110604386

PATIENT
  Sex: Female
  Weight: 204.12 kg

DRUGS (14)
  1. BENADRYL [Concomitant]
     Indication: MULTIPLE ALLERGIES
     Route: 048
  2. SYMBICORT [Concomitant]
     Route: 055
  3. HYDROCHLOROTHIAZIDE [Concomitant]
     Route: 048
  4. SEROQUEL [Concomitant]
  5. IBUPROFEN [Concomitant]
     Indication: PAIN
     Route: 048
  6. VENTOLIN [Concomitant]
     Route: 055
  7. LANSOPRAZOLE [Concomitant]
  8. LISINOPRIL AND HYDROCHLOROTHIAZIDE [Concomitant]
     Dosage: 20/12.5MG DAILY
  9. EXTRA STRENGTH TYLENOL [Suspect]
     Indication: BACK PAIN
     Dosage: 1000 MG ONCE EVERY 4-6 HOURS
     Route: 048
     Dates: start: 20110516
  10. EXTRA STRENGTH TYLENOL [Suspect]
     Route: 048
  11. ZOLPIDEM TARTRATE [Concomitant]
     Route: 048
  12. HYDROCORTISONE CREAM [Concomitant]
     Route: 061
  13. MELOXICAM [Concomitant]
     Route: 048
  14. ZONEGRAN [Concomitant]

REACTIONS (8)
  - MATERNAL EXPOSURE DURING PREGNANCY [None]
  - ABDOMINAL PAIN [None]
  - MUSCLE SPASMS [None]
  - NEPHROLITHIASIS [None]
  - DRUG INEFFECTIVE [None]
  - HAEMORRHAGE [None]
  - NAUSEA [None]
  - DIARRHOEA [None]
